FAERS Safety Report 17317177 (Version 1)
Quarter: 2020Q1

REPORT INFORMATION
  Report Type: Spontaneous
  Country: US (occurrence: US)
  Receive Date: 20200124
  Receipt Date: 20200124
  Transmission Date: 20200409
  Serious: Yes (Other)
  Sender: FDA-Public Use
  Company Number: US-MYLANLABS-2020M1007317

PATIENT

DRUGS (3)
  1. LAMOTRIGINE. [Suspect]
     Active Substance: LAMOTRIGINE
     Dosage: UNK (50MG FOR ANOTHER TWO WEEKS)
  2. LAMOTRIGINE. [Suspect]
     Active Substance: LAMOTRIGINE
     Indication: BIPOLAR DISORDER
     Dosage: UNK (TWO WEEKS I WAS ON 25MG)
  3. LAMOTRIGINE. [Suspect]
     Active Substance: LAMOTRIGINE
     Dosage: UNK (100MG A COUPLE OF DAYS AGO)

REACTIONS (4)
  - Somnolence [Unknown]
  - Suicidal ideation [Unknown]
  - Energy increased [Unknown]
  - Psychotic disorder [Unknown]
